FAERS Safety Report 6982650-1 (Version None)
Quarter: 2010Q3

REPORT INFORMATION
  Report Type: 
  Country: None (occurrence: None)
  Receive Date: 20100914
  Receipt Date: 20100409
  Transmission Date: 20110219
  Serious: Yes (Other)
  Sender: FDA-Public Use
  Company Number: US-PFIZER INC-2010022759

PATIENT
  Sex: Female
  Weight: 68 kg

DRUGS (6)
  1. LYRICA [Suspect]
     Indication: LUMBAR RADICULOPATHY
     Dosage: 50 MG, TWICE TO THREE TIMES DAILY
     Route: 048
     Dates: start: 20091001, end: 20100201
  2. LIPITOR [Concomitant]
     Dosage: 80 MG, UNK
  3. ENALAPRIL MALEATE [Concomitant]
  4. PROPRANOLOL [Concomitant]
  5. GLIPIZIDE [Concomitant]
  6. ISOSORBIDE [Concomitant]
     Dosage: 30 MG, UNK

REACTIONS (5)
  - ANGER [None]
  - DEPRESSION [None]
  - IRRITABILITY [None]
  - PAIN [None]
  - VISION BLURRED [None]
